FAERS Safety Report 7600019-3 (Version None)
Quarter: 2011Q3

REPORT INFORMATION
  Report Type: 
  Country: None (occurrence: None)
  Receive Date: 20110711
  Receipt Date: 20110706
  Transmission Date: 20111222
  Serious: Yes (Other)
  Sender: FDA-Public Use
  Company Number: US-AMGEN-USASP2011034482

PATIENT
  Age: 59 Year
  Sex: Male
  Weight: 89.3 kg

DRUGS (3)
  1. RITUXAN [Concomitant]
  2. NPLATE [Suspect]
     Indication: IDIOPATHIC THROMBOCYTOPENIC PURPURA
     Dates: start: 20100312, end: 20100518
  3. RHOGAM [Concomitant]

REACTIONS (2)
  - RETINAL ARTERY EMBOLISM [None]
  - MEDICATION ERROR [None]
